FAERS Safety Report 8025854-1 (Version None)
Quarter: 2012Q1

REPORT INFORMATION
  Report Type: 
  Country: None (occurrence: None)
  Receive Date: 20120105
  Receipt Date: 20110401
  Transmission Date: 20120608
  Serious: No
  Sender: FDA-Public Use
  Company Number: US-ABBOTT-11P-163-0716465-00

PATIENT
  Sex: Female

DRUGS (3)
  1. UNKNOWN HORMONES [Suspect]
     Indication: IN VITRO FERTILISATION
  2. SYNTHROID [Suspect]
     Indication: BASEDOW'S DISEASE
     Dates: start: 20100901
  3. SYNTHROID [Suspect]
     Dates: start: 20100901

REACTIONS (1)
  - BLOOD THYROID STIMULATING HORMONE INCREASED [None]
